FAERS Safety Report 25500719 (Version 1)
Quarter: 2025Q3

REPORT INFORMATION
  Report Type: Spontaneous
  Country: JP (occurrence: JP)
  Receive Date: 20250701
  Receipt Date: 20250701
  Transmission Date: 20251020
  Serious: Yes (Life-Threatening, Hospitalization, Other)
  Sender: PFIZER
  Company Number: JP-PFIZER INC-202500131399

PATIENT
  Age: 60 Year
  Sex: Male

DRUGS (14)
  1. PAXLOVID [Interacting]
     Active Substance: NIRMATRELVIR\RITONAVIR
     Indication: COVID-19 treatment
     Dosage: 150/100 MG (10 DOSES WERE PRESCRIBED)
  2. TACROLIMUS [Interacting]
     Active Substance: TACROLIMUS
     Indication: Interstitial lung disease
     Dosage: 1.5 MG, 2X/DAY
  3. TACROLIMUS [Interacting]
     Active Substance: TACROLIMUS
     Indication: Dermatomyositis
     Dosage: 1 MG, 2X/DAY
  4. TACROLIMUS [Interacting]
     Active Substance: TACROLIMUS
     Dosage: 2 MG, DAILY
  5. ALFACALCIDOL [Concomitant]
     Active Substance: ALFACALCIDOL
     Indication: Osteoporosis
     Dosage: 0.5 UG, 1X/DAY
  6. SULFAMETHOXAZOLE\TRIMETHOPRIM [Concomitant]
     Active Substance: SULFAMETHOXAZOLE\TRIMETHOPRIM
     Indication: Pneumocystis jirovecii pneumonia
     Dosage: 80/400MG, 1X/DAY, THREE DAYS A WEEK
  7. CANAGLIFLOZIN [Concomitant]
     Active Substance: CANAGLIFLOZIN
     Indication: Type 2 diabetes mellitus
     Dosage: 100 MG, 1X/DAY
  8. PREDNISOLONE [Concomitant]
     Active Substance: PREDNISOLONE
     Dosage: 7 MG, 1X/DAY
  9. SEMAGLUTIDE [Concomitant]
     Active Substance: SEMAGLUTIDE
     Dosage: 7 MG, 1X/DAY
  10. ZOPICLONE [Concomitant]
     Active Substance: ZOPICLONE
     Dosage: 7.5 MG, 1X/DAY UPON WAKING
  11. MINODRONIC ACID [Concomitant]
     Active Substance: MINODRONIC ACID
     Dosage: 50 MG, ONCE A MONTH
  12. VONOPRAZAN [Concomitant]
     Active Substance: VONOPRAZAN
     Dosage: 10 MG, 1X/DAY
  13. NIFEDIPINE [Concomitant]
     Active Substance: NIFEDIPINE
     Dosage: 20 MG, 1X/DAY (CONTROLLED-RELEASE TABLET)
  14. NIFEDIPINE [Concomitant]
     Active Substance: NIFEDIPINE
     Dosage: 20 MG, 2X/DAY

REACTIONS (5)
  - Drug interaction [Recovered/Resolved]
  - Acute kidney injury [Recovered/Resolved]
  - Prinzmetal angina [Recovered/Resolved]
  - Atrioventricular block complete [Recovered/Resolved]
  - Ventricular tachycardia [Recovered/Resolved]
